FAERS Safety Report 17065361 (Version 1)
Quarter: 2019Q4

REPORT INFORMATION
  Report Type: Spontaneous
  Country: US (occurrence: US)
  Receive Date: 20191122
  Receipt Date: 20191122
  Transmission Date: 20200122
  Serious: No
  Sender: FDA-Public Use
  Company Number: None

PATIENT
  Age: 49 Year
  Sex: Female
  Weight: 82.6 kg

DRUGS (2)
  1. TIROFIBAN [Concomitant]
     Active Substance: TIROFIBAN
     Dates: start: 20191018, end: 20191018
  2. HEPARIN [Suspect]
     Active Substance: HEPARIN SODIUM
     Route: 040
     Dates: start: 20191018, end: 20191018

REACTIONS (2)
  - Therapy non-responder [None]
  - Product quality issue [None]

NARRATIVE: CASE EVENT DATE: 20191018
